FAERS Safety Report 8954385 (Version 1)
Quarter: 2012Q4

REPORT INFORMATION
  Report Type: 
  Country: PE (occurrence: PE)
  Receive Date: 20121207
  Receipt Date: 20121207
  Transmission Date: 20130627
  Serious: Yes (Hospitalization)
  Sender: FDA-Public Use
  Company Number: PE-AMGEN-PERSP2012078422

PATIENT
  Age: 72 Year
  Sex: Female

DRUGS (1)
  1. PROLIA [Suspect]
     Indication: OSTEOPOROSIS
     Dosage: 60MG Cyclic
     Route: 058
     Dates: start: 20111011

REACTIONS (3)
  - Pneumonia [Unknown]
  - Psychotic disorder [Unknown]
  - Malaise [Unknown]
